FAERS Safety Report 4525091-9 (Version None)
Quarter: 2004Q4

REPORT INFORMATION
  Report Type: 
  Country: None (occurrence: None)
  Receive Date: 20041116
  Receipt Date: 20040910
  Transmission Date: 20050328
  Serious: No
  Sender: FDA-Public Use
  Company Number: S04-USA-06143-01

PATIENT
  Age: 72 Year
  Sex: Female

DRUGS (4)
  1. NAMENDA [Suspect]
     Indication: DEMENTIA ALZHEIMER'S TYPE
     Dosage: 35 MG ONCE PO
     Route: 048
     Dates: start: 20040910, end: 20040910
  2. COZAAR [Concomitant]
  3. ZOCOR [Concomitant]
  4. SYNTHROID [Concomitant]

REACTIONS (2)
  - ACCIDENTAL OVERDOSE [None]
  - VISION BLURRED [None]
